FAERS Safety Report 25619606 (Version 1)
Quarter: 2025Q3

REPORT INFORMATION
  Report Type: Spontaneous
  Country: JP (occurrence: JP)
  Receive Date: 20250729
  Receipt Date: 20250729
  Transmission Date: 20251021
  Serious: Yes (Other)
  Sender: TAKEDA
  Company Number: JP-TAKEDA-2025TJP002741

PATIENT
  Sex: Male

DRUGS (3)
  1. ALUNBRIG [Suspect]
     Active Substance: BRIGATINIB
     Indication: Non-small cell lung cancer
     Dosage: 90 MILLIGRAM, QD
     Dates: start: 20250214
  2. ALUNBRIG [Suspect]
     Active Substance: BRIGATINIB
  3. ALUNBRIG [Suspect]
     Active Substance: BRIGATINIB

REACTIONS (3)
  - Non-small cell lung cancer [Unknown]
  - Blood creatine phosphokinase increased [Recovered/Resolved]
  - Myalgia [Unknown]

NARRATIVE: CASE EVENT DATE: 20250221
